FAERS Safety Report 10381987 (Version 1)
Quarter: 2014Q1

REPORT INFORMATION
  Report Type: Spontaneous
  Country: US (occurrence: None)
  Receive Date: 20140306
  Receipt Date: 20140306
  Transmission Date: 20141002
  Serious: Yes (Other)
  Sender: FDA-Public Use
  Company Number: 163-21880-13112254

PATIENT
  Age: 69 Year
  Sex: Male
  Weight: 95.26 kg

DRUGS (4)
  1. REVLIMID (LENALIDOMIDE) 10 MILLIGRAM, CAPSULES) [Suspect]
     Indication: PLASMA CELL MYELOMA
     Route: 048
     Dates: start: 20130724
  2. AMLODIPINE BESYLATE (AMLODIPINE BESILATE) [Concomitant]
  3. HYDROCHLOROTHIAZIDE (HYDROCHLOROTHIAZIDE) [Concomitant]
  4. MULTIVITAMINS (MULTIVITAMINS) [Concomitant]

REACTIONS (1)
  - Stomatitis [None]
